FAERS Safety Report 4662886-5 (Version None)
Quarter: 2005Q2

REPORT INFORMATION
  Report Type: 
  Country: None (occurrence: None)
  Receive Date: 20050502
  Receipt Date: 20050210
  Transmission Date: 20051028
  Serious: No
  Sender: FDA-Public Use
  Company Number: 200511103US

PATIENT
  Age: 16 Year
  Sex: Female
  Weight: 51 kg

DRUGS (2)
  1. KETEK [Suspect]
     Indication: PNEUMONIA
     Dosage: QD
     Dates: start: 20050131, end: 20050131
  2. ZITHROMAX [Concomitant]

REACTIONS (1)
  - DYSPNOEA [None]
